FAERS Safety Report 26036807 (Version 2)
Quarter: 2025Q4

REPORT INFORMATION
  Report Type: Report from Study
  Country: MX (occurrence: MX)
  Receive Date: 20251112
  Receipt Date: 20251126
  Transmission Date: 20260117
  Serious: Yes (Other)
  Sender: ALEXION PHARMACEUTICALS
  Company Number: MX-AstraZeneca-CH-00855302A

PATIENT
  Age: 83 Year
  Sex: Male
  Weight: 80 kg

DRUGS (2)
  1. TAGRISSO [Suspect]
     Active Substance: OSIMERTINIB
     Indication: Lung neoplasm malignant
     Dosage: 80 MILLIGRAM, QD
     Dates: start: 202505, end: 202509
  2. GOSERELIN ACETATE [Suspect]
     Active Substance: GOSERELIN ACETATE
     Indication: Prostate cancer
     Dosage: 10.8 MILLIGRAM, EVERY 3 MONTHS
     Dates: start: 202406

REACTIONS (7)
  - Skin cancer [Unknown]
  - Lung neoplasm malignant [Unknown]
  - Glucose tolerance impaired [Unknown]
  - Subcutaneous abscess [Unknown]
  - Malignant neoplasm progression [Unknown]
  - Renal failure [Unknown]
  - Hepatic failure [Unknown]

NARRATIVE: CASE EVENT DATE: 20241001
